FAERS Safety Report 9006156 (Version 2)
Quarter: 2013Q1

REPORT INFORMATION
  Report Type: Spontaneous
  Country: US (occurrence: None)
  Receive Date: 20121226
  Receipt Date: 20130118
  Transmission Date: 20140127
  Serious: Yes (Hospitalization)
  Sender: FDA-Public Use
  Company Number: QSC-2012-0299

PATIENT
  Age: 34 Year
  Sex: Female

DRUGS (8)
  1. ACTHAR GEL-SYNTHETIC [Suspect]
     Indication: NEPHROTIC SYNDROME
     Dosage: 40 UNITS
     Route: 058
     Dates: start: 201208, end: 20120927
  2. PREDNISONE (PREDNISONE) [Concomitant]
  3. AZITHROMYCIN (AZITHROMYCIN) [Concomitant]
  4. CELEXA (CITALOPRAM HYDROBROMIDE) [Concomitant]
  5. FUROSEMIDE (FUROSEMIDE) [Concomitant]
  6. LABETALOL (LAETALOL) [Concomitant]
  7. LOSARTAN (LOSARTAN) [Concomitant]
  8. VITAMIN D (COLECALCIFEROL) [Concomitant]

REACTIONS (3)
  - Cardiomyopathy [None]
  - Hypersensitivity [None]
  - Influenza like illness [None]
